FAERS Safety Report 24824879 (Version 1)
Quarter: 2025Q1

REPORT INFORMATION
  Report Type: Spontaneous
  Country: US (occurrence: None)
  Receive Date: 20250108
  Receipt Date: 20250108
  Transmission Date: 20250408
  Serious: Yes (Life-Threatening, Hospitalization, Disabling)
  Sender: FDA-CTU
  Company Number: None

PATIENT
  Age: 23 Year
  Sex: Male

DRUGS (5)
  1. FLUOXETINE [Suspect]
     Active Substance: FLUOXETINE HYDROCHLORIDE
     Dosage: 1 CAPSULE AT BEDTIME ORAL
     Route: 048
     Dates: start: 20220725, end: 20220810
  2. EFFEXOR [Suspect]
     Active Substance: VENLAFAXINE HYDROCHLORIDE
  3. ABILIFY [Suspect]
     Active Substance: ARIPIPRAZOLE
  4. HALDOL [Suspect]
     Active Substance: HALOPERIDOL
  5. QUVIVIQ [Concomitant]
     Active Substance: DARIDOREXANT

REACTIONS (18)
  - Sexual dysfunction [None]
  - Suicidal ideation [None]
  - Aphantasia [None]
  - Depersonalisation/derealisation disorder [None]
  - Weight decreased [None]
  - Decreased appetite [None]
  - Catatonia [None]
  - Emotional poverty [None]
  - Anterograde amnesia [None]
  - Amnesia [None]
  - Organic brain syndrome [None]
  - Influenza like illness [None]
  - Neuropathy peripheral [None]
  - Insomnia [None]
  - Urinary retention [None]
  - Akathisia [None]
  - Temperature intolerance [None]
  - Constipation [None]

NARRATIVE: CASE EVENT DATE: 20220810
